FAERS Safety Report 10755823 (Version 1)
Quarter: 2015Q1

REPORT INFORMATION
  Report Type: Spontaneous
  Country: US (occurrence: US)
  Receive Date: 20150202
  Receipt Date: 20150202
  Transmission Date: 20150721
  Serious: No
  Sender: FDA-Public Use
  Company Number: US-MALLINCKRODT-T201401979

PATIENT
  Age: 49 Year
  Sex: Female
  Weight: 57.6 kg

DRUGS (2)
  1. BENADRYL [Concomitant]
     Active Substance: DIPHENHYDRAMINE HYDROCHLORIDE
     Indication: PREMEDICATION
     Dosage: 25 MG, 20 MINUTES PRIOR TO OPTIMARK
     Route: 048
     Dates: start: 20140319, end: 20140319
  2. OPTIMARK [Suspect]
     Active Substance: GADOVERSETAMIDE
     Indication: NUCLEAR MAGNETIC RESONANCE IMAGING
     Dosage: 50 ML, SINGLE
     Route: 042
     Dates: start: 20140319, end: 20140319

REACTIONS (2)
  - Feeling hot [Recovered/Resolved]
  - Feeling abnormal [Recovered/Resolved]

NARRATIVE: CASE EVENT DATE: 20140319
